FAERS Safety Report 6710282-9 (Version None)
Quarter: 2010Q2

REPORT INFORMATION
  Report Type: 
  Country: None (occurrence: None)
  Receive Date: 20100430
  Receipt Date: 20100416
  Transmission Date: 20101027
  Serious: Yes (Other)
  Sender: FDA-Public Use
  Company Number: 010526

PATIENT
  Age: 29 Year
  Sex: Male

DRUGS (3)
  1. VIMPAT [Suspect]
     Indication: PARTIAL SEIZURES
     Dosage: (MAXIMUM DOSE; 100 MG; INCREASE OF 50 MG/WEEK.)
     Dates: start: 20081031, end: 20090211
  2. LEVETIRACETAM [Concomitant]
  3. ZONISAMIDE [Concomitant]

REACTIONS (3)
  - NAUSEA [None]
  - SLEEP DISORDER [None]
  - VERTIGO [None]
